FAERS Safety Report 24202883 (Version 2)
Quarter: 2024Q3

REPORT INFORMATION
  Report Type: Spontaneous
  Country: MX (occurrence: MX)
  Receive Date: 20240813
  Receipt Date: 20240919
  Transmission Date: 20241017
  Serious: Yes (Hospitalization)
  Sender: ROCHE
  Company Number: MX-ROCHE-10000053783

PATIENT
  Age: 33 Year
  Sex: Male
  Weight: 89 kg

DRUGS (1)
  1. OCREVUS [Suspect]
     Active Substance: OCRELIZUMAB
     Indication: Multiple sclerosis
     Route: 042
     Dates: start: 202310

REACTIONS (3)
  - Facial paresis [Recovered/Resolved]
  - Facial paralysis [Recovered/Resolved]
  - Muscular weakness [Recovered/Resolved]

NARRATIVE: CASE EVENT DATE: 20240704
